FAERS Safety Report 10413165 (Version 3)
Quarter: 2014Q4

REPORT INFORMATION
  Report Type: Report from Study
  Country: US (occurrence: US)
  Receive Date: 20140827
  Receipt Date: 20141112
  Transmission Date: 20150528
  Serious: Yes (Hospitalization)
  Sender: FDA-Public Use
  Company Number: US-PFIZER INC-2014234544

PATIENT
  Age: 24 Year
  Sex: Male
  Weight: 60 kg

DRUGS (20)
  1. INSULIN GLARGINE [Concomitant]
     Active Substance: INSULIN GLARGINE
     Indication: DIABETES MELLITUS
     Dosage: 20 IU, DAILY (QHS)
     Route: 058
     Dates: start: 201301
  2. ONDASETRON [Concomitant]
     Indication: NAUSEA
     Dosage: 8 MG, Q2H
     Route: 048
     Dates: start: 20140803
  3. ZOSYN [Concomitant]
     Active Substance: PIPERACILLIN SODIUM\TAZOBACTAM SODIUM
     Indication: BACTERAEMIA
     Dosage: 3.375 G, 4X/DAY (Q6H)
     Route: 042
     Dates: start: 20140808, end: 20140821
  4. OXYCODONE [Concomitant]
     Active Substance: OXYCODONE
     Indication: BACK PAIN
     Dosage: 10 MG, Q3H
     Route: 048
     Dates: start: 20140718
  5. ACYCLOVIR. [Concomitant]
     Active Substance: ACYCLOVIR
     Indication: NEUTROPENIA
     Dosage: 800 MG, 2X/DAY (Q12H)
     Route: 048
     Dates: start: 20140717
  6. FLUCONAZOLE. [Concomitant]
     Active Substance: FLUCONAZOLE
     Indication: NEUTROPENIA
     Dosage: 200 MG, DAILY
     Route: 048
     Dates: start: 20140717
  7. SIMETHICONE [Concomitant]
     Active Substance: DIMETHICONE\SILICON DIOXIDE\SIMETHICONE
     Indication: FLATULENCE
     Dosage: 80 MG, TID/PRN
     Route: 048
     Dates: start: 20140805
  8. CYTARABINE. [Suspect]
     Active Substance: CYTARABINE
     Indication: ACUTE LYMPHOCYTIC LEUKAEMIA
     Dosage: POWDER; 340 MG, CYCLIC (DAYS 1-7 CONTINUOUS INFUSION, 15-20 DAY CYCLE)
     Route: 042
     Dates: start: 20140724, end: 20140731
  9. MITOXANTRONE HYDROCHLORIDE. [Suspect]
     Active Substance: MITOXANTRONE HYDROCHLORIDE
     Indication: ACUTE LYMPHOCYTIC LEUKAEMIA
     Dosage: SOLUTION; 20 MG, CYCLIC (DAYS 1-3, 15-20 DAY CYCLE)
     Route: 042
     Dates: start: 20140724, end: 20140731
  10. DOCUSATE SODIUM. [Concomitant]
     Active Substance: DOCUSATE SODIUM
     Indication: CONSTIPATION
     Dosage: 200 MG, 2X/DAY
     Route: 048
     Dates: start: 20140717
  11. MAGNESIUM HYDROXIDE. [Concomitant]
     Active Substance: MAGNESIUM HYDROXIDE
     Indication: CONSTIPATION
     Dosage: 2.4 G, QHS/PRN
     Route: 048
     Dates: start: 20140815
  12. PROCHLORPERAZINE. [Concomitant]
     Active Substance: PROCHLORPERAZINE
     Indication: NAUSEA
     Dosage: 5-10 MG Q6H/PRN
     Route: 048
     Dates: start: 20140803
  13. LIDOCAINE. [Concomitant]
     Active Substance: LIDOCAINE
     Indication: ARTHRALGIA
     Dosage: 1 DF, 2X/DAY (TOPICAL: 1 DF (PATCH), 12H)
     Route: 062
     Dates: start: 20140809
  14. BISACODYL. [Concomitant]
     Active Substance: BISACODYL
     Indication: CONSTIPATION
     Dosage: 10 MG, QHS/PRN
     Route: 048
     Dates: start: 20140815
  15. CALCIUM CARBONATE. [Concomitant]
     Active Substance: CALCIUM CARBONATE
     Indication: DYSPEPSIA
     Dosage: 500 MG, TID/PRN
     Route: 048
     Dates: start: 20140808
  16. POLYETHYLENE GLYCOL [Concomitant]
     Active Substance: POLYETHYLENE GLYCOLS
     Indication: CONSTIPATION
     Dosage: 17 G, BID/PRN
     Route: 048
     Dates: start: 20140815
  17. INSULIN LISPRO [Concomitant]
     Active Substance: INSULIN LISPRO
     Indication: DIABETES MELLITUS
     Dosage: 2-8 IU TID A.C.
     Route: 058
     Dates: start: 201401
  18. SENNA [Concomitant]
     Active Substance: SENNA LEAF\SENNOSIDES\SENNOSIDES A AND B
     Indication: CONSTIPATION
     Dosage: 17.2 MG, 2X/DAY
     Route: 048
     Dates: start: 20140815
  19. GABAPENTIN. [Concomitant]
     Active Substance: GABAPENTIN
     Indication: ARTHRALGIA
     Dosage: 800 MG, 3X/DAY (Q8H)
     Route: 048
     Dates: start: 20140809
  20. SULFAMETHOXAZOLE-TRIMETHOPRIM (SMZ) [Concomitant]
     Active Substance: SULFAMETHOXAZOLE\TRIMETHOPRIM
     Indication: BACTERAEMIA
     Dosage: 1 DF (TAB), 2X/DAY
     Route: 048
     Dates: start: 20140818

REACTIONS (1)
  - Pneumonia fungal [Recovering/Resolving]

NARRATIVE: CASE EVENT DATE: 20140819
